FAERS Safety Report 23518325 (Version 1)
Quarter: 2024Q1

REPORT INFORMATION
  Report Type: Report from Study
  Country: US (occurrence: US)
  Receive Date: 20240213
  Receipt Date: 20240213
  Transmission Date: 20240410
  Serious: Yes (Hospitalization, Other)
  Sender: FDA-Public Use
  Company Number: US-ABBVIE-5627454

PATIENT
  Sex: Female

DRUGS (2)
  1. HUMIRA [Suspect]
     Active Substance: ADALIMUMAB
     Indication: Colitis ulcerative
     Route: 058
  2. RINVOQ [Suspect]
     Active Substance: UPADACITINIB
     Indication: Colitis ulcerative
     Route: 048
     Dates: start: 20231205

REACTIONS (9)
  - Haemorrhage [Recovered/Resolved]
  - Hip surgery [Recovered/Resolved]
  - Weight decreased [Recovering/Resolving]
  - Alopecia [Recovering/Resolving]
  - Rectal prolapse [Recovered/Resolved]
  - Weight increased [Unknown]
  - Therapeutic product effect decreased [Unknown]
  - Oropharyngeal pain [Unknown]
  - Hip surgery [Recovered/Resolved]

NARRATIVE: CASE EVENT DATE: 20230501
